FAERS Safety Report 6509986-2 (Version None)
Quarter: 2009Q4

REPORT INFORMATION
  Report Type: 
  Country: None (occurrence: None)
  Receive Date: 20091222
  Receipt Date: 20091219
  Transmission Date: 20100525
  Serious: Yes (Death, Hospitalization)
  Sender: FDA-Public Use
  Company Number: PHHO2008US08258

PATIENT
  Age: 42 Year
  Sex: Male
  Weight: 70 kg

DRUGS (3)
  1. STI571/CGP57148B T35717+CAPS [Suspect]
     Indication: LYMPHOCYTIC LEUKAEMIA
     Dosage: 36000 MG, UNK
     Dates: start: 20060321
  2. TACROLIMUS [Suspect]
  3. TPN [Concomitant]

REACTIONS (3)
  - FEBRILE NEUTROPENIA [None]
  - HYPERKALAEMIA [None]
  - SEPSIS [None]
